FAERS Safety Report 19319010 (Version 1)
Quarter: 2021Q2

REPORT INFORMATION
  Report Type: Spontaneous
  Country: US (occurrence: US)
  Receive Date: 20210527
  Receipt Date: 20210527
  Transmission Date: 20210717
  Serious: Yes (Other)
  Sender: FDA-Public Use
  Company Number: None

PATIENT

DRUGS (3)
  1. VAULT LIGHTENER AND EXFOLIATOR SCRUB [Suspect]
     Active Substance: COSMETICS
  2. CBD INFUSED VAGINAL TIGHTENING OIL [Suspect]
     Active Substance: CANNABIDIOL\HERBALS
     Indication: DEHYDRATION
     Dates: start: 20200225, end: 20210310
  3. COSMETICS [Suspect]
     Active Substance: COSMETICS

REACTIONS (3)
  - Burning sensation [None]
  - Urinary tract infection [None]
  - Rash [None]

NARRATIVE: CASE EVENT DATE: 20210510
